FAERS Safety Report 5666818-2 (Version None)
Quarter: 2008Q1

REPORT INFORMATION
  Report Type: 
  Country: None (occurrence: None)
  Receive Date: 20080315
  Receipt Date: 20071221
  Transmission Date: 20080703
  Serious: No
  Sender: FDA-Public Use
  Company Number: US-ABBOTT-08P-163-0432029-00

PATIENT
  Sex: Female
  Weight: 52.21 kg

DRUGS (2)
  1. HUMIRA [Suspect]
     Indication: RHEUMATOID ARTHRITIS
     Route: 058
     Dates: start: 20071119
  2. ACETYLSALICYLIC ACID [Concomitant]
     Indication: ANTIPHOSPHOLIPID SYNDROME
     Route: 048

REACTIONS (1)
  - INJECTION SITE BRUISING [None]
